FAERS Safety Report 7435427-7 (Version None)
Quarter: 2011Q2

REPORT INFORMATION
  Report Type: 
  Country: None (occurrence: None)
  Receive Date: 20110425
  Receipt Date: 20110420
  Transmission Date: 20111010
  Serious: Yes (Hospitalization)
  Sender: FDA-Public Use
  Company Number: US-MERCK-1104USA00576

PATIENT
  Age: 87 Year
  Sex: Male

DRUGS (2)
  1. ZOLINZA [Suspect]
     Indication: T-CELL LYMPHOMA
     Route: 048
     Dates: end: 20110301
  2. ZOLINZA [Suspect]
     Route: 048
     Dates: start: 20110301

REACTIONS (6)
  - RENAL FUNCTION TEST ABNORMAL [None]
  - HAEMOGLOBIN DECREASED [None]
  - APHAGIA [None]
  - PLATELET COUNT DECREASED [None]
  - NAUSEA [None]
  - ASTHENIA [None]
